FAERS Safety Report 6752612-8 (Version None)
Quarter: 2010Q2

REPORT INFORMATION
  Report Type: 
  Country: None (occurrence: None)
  Receive Date: 20100601
  Receipt Date: 20100601
  Transmission Date: 20101027
  Serious: Yes (Other)
  Sender: FDA-Public Use
  Company Number: None

PATIENT
  Age: 62 Year
  Sex: Female
  Weight: 79.3795 kg

DRUGS (2)
  1. NUVIGIL [Suspect]
     Indication: FATIGUE
     Dosage: 250 MG 1 PILL/AM PO
     Route: 048
     Dates: start: 20090701, end: 20090709
  2. NUVIGIL [Suspect]
     Indication: SLEEP APNOEA SYNDROME
     Dosage: 250 MG 1 PILL/AM PO
     Route: 048
     Dates: start: 20090701, end: 20090709

REACTIONS (5)
  - HEADACHE [None]
  - PRODUCT SUBSTITUTION ISSUE [None]
  - RASH [None]
  - SKIN LESION [None]
  - SKIN ULCER [None]
